FAERS Safety Report 5245638-7 (Version None)
Quarter: 2007Q1

REPORT INFORMATION
  Report Type: 
  Country: None (occurrence: None)
  Receive Date: 20070223
  Receipt Date: 20070216
  Transmission Date: 20070707
  Serious: Yes (Hospitalization)
  Sender: FDA-Public Use
  Company Number: IT-ROXANE LABORATORIES, INC-2007-BP-02370RO

PATIENT
  Age: 64 Year
  Sex: Male

DRUGS (3)
  1. LEUCOVORIN CALCIUM [Suspect]
     Indication: COLON CANCER
     Dates: start: 20041001, end: 20050412
  2. OXALIPLATIN [Suspect]
     Indication: COLON CANCER
     Dates: start: 20041001, end: 20050412
  3. FLUOROURACIL [Suspect]
     Indication: COLON CANCER
     Dates: start: 20041001, end: 20050412

REACTIONS (21)
  - ALANINE AMINOTRANSFERASE INCREASED [None]
  - ALBUMINURIA [None]
  - ANAEMIA HAEMOLYTIC AUTOIMMUNE [None]
  - ASPARTATE AMINOTRANSFERASE INCREASED [None]
  - ASTHENIA [None]
  - BACK PAIN [None]
  - BLOOD BILIRUBIN INCREASED [None]
  - BLOOD CREATINE PHOSPHOKINASE INCREASED [None]
  - BLOOD CREATININE INCREASED [None]
  - BLOOD LACTATE DEHYDROGENASE INCREASED [None]
  - BLOOD URIC ACID INCREASED [None]
  - C-REACTIVE PROTEIN INCREASED [None]
  - CHILLS [None]
  - GAMMA-GLUTAMYLTRANSFERASE INCREASED [None]
  - HAEMATURIA [None]
  - HYPOKALAEMIA [None]
  - OCULAR ICTERUS [None]
  - RENAL IMPAIRMENT [None]
  - SCLERAL HAEMORRHAGE [None]
  - THROMBOCYTOPENIA [None]
  - URINE COLOUR ABNORMAL [None]
